FAERS Safety Report 16988349 (Version 2)
Quarter: 2019Q4

REPORT INFORMATION
  Report Type: Report from Study
  Country: US (occurrence: US)
  Receive Date: 20191104
  Receipt Date: 20191119
  Transmission Date: 20200122
  Serious: Yes (Death, Hospitalization)
  Sender: FDA-Public Use
  Company Number: US-EMD SERONO-9125527

PATIENT
  Sex: Female

DRUGS (1)
  1. REBIF [Suspect]
     Active Substance: INTERFERON BETA-1A
     Indication: MULTIPLE SCLEROSIS
     Route: 058
     Dates: start: 2011

REACTIONS (6)
  - Decubitus ulcer [Unknown]
  - Urinary tract infection [Unknown]
  - Dehydration [Unknown]
  - Organ failure [Fatal]
  - Sepsis [Fatal]
  - Multiple sclerosis relapse [Unknown]
